FAERS Safety Report 20369979 (Version 1)
Quarter: 2022Q1

REPORT INFORMATION
  Report Type: Spontaneous
  Country: CA (occurrence: CA)
  Receive Date: 20220124
  Receipt Date: 20220124
  Transmission Date: 20220423
  Serious: Yes (Other)
  Sender: FDA-Public Use
  Company Number: CA-PFIZER INC-202200047508

PATIENT
  Sex: Female

DRUGS (2)
  1. PAMIDRONATE DISODIUM [Suspect]
     Active Substance: PAMIDRONATE DISODIUM
     Dosage: 90 MG
     Route: 041
  2. PAMIDRONATE DISODIUM [Suspect]
     Active Substance: PAMIDRONATE DISODIUM
     Dosage: 60 MG, EVERY 3 MONTHS
     Route: 041

REACTIONS (4)
  - Breast cancer recurrent [Unknown]
  - Scan abnormal [Unknown]
  - Joint noise [Unknown]
  - Off label use [Unknown]
